FAERS Safety Report 6183809-6 (Version None)
Quarter: 2009Q2

REPORT INFORMATION
  Report Type: 
  Country: None (occurrence: None)
  Receive Date: 20090508
  Receipt Date: 20090428
  Transmission Date: 20091009
  Serious: Yes (Hospitalization)
  Sender: FDA-Public Use
  Company Number: US-AMGEN-QUU344782

PATIENT
  Sex: Male

DRUGS (1)
  1. ENBREL [Suspect]
     Indication: PSORIASIS
     Route: 058
     Dates: start: 20030731

REACTIONS (4)
  - ARTHRITIS [None]
  - INJECTION SITE IRRITATION [None]
  - PSORIASIS [None]
  - ROTATOR CUFF SYNDROME [None]
